FAERS Safety Report 5730408-3 (Version None)
Quarter: 2008Q2

REPORT INFORMATION
  Report Type: 
  Country: None (occurrence: None)
  Receive Date: 20080505
  Receipt Date: 20080505
  Transmission Date: 20081010
  Serious: Yes (Other)
  Sender: FDA-Public Use
  Company Number: None

PATIENT
  Age: 50 Year
  Sex: Male
  Weight: 86.1834 kg

DRUGS (1)
  1. LYRICA [Suspect]
     Indication: PAIN
     Dosage: 4 1 TIME DAY PO
     Route: 048
     Dates: start: 20080106, end: 20080503

REACTIONS (8)
  - ABNORMAL SLEEP-RELATED EVENT [None]
  - BREAST PAIN [None]
  - DIPLOPIA [None]
  - LOSS OF CONSCIOUSNESS [None]
  - ROAD TRAFFIC ACCIDENT [None]
  - SOMNAMBULISM [None]
  - THINKING ABNORMAL [None]
  - WEIGHT INCREASED [None]
